FAERS Safety Report 13565942 (Version 2)
Quarter: 2017Q2

REPORT INFORMATION
  Report Type: Spontaneous
  Country: JP (occurrence: JP)
  Receive Date: 20170520
  Receipt Date: 20170605
  Transmission Date: 20170830
  Serious: Yes (Hospitalization)
  Sender: FDA-Public Use
  Company Number: JP-AMGEN-JPNSP2017077157

PATIENT
  Age: 65 Year
  Sex: Female
  Weight: 67 kg

DRUGS (1)
  1. RANMARK [Suspect]
     Active Substance: DENOSUMAB
     Indication: BONE LESION
     Dosage: 120 MG, Q4WK
     Route: 058

REACTIONS (3)
  - Fall [Unknown]
  - Atypical femur fracture [Unknown]
  - Exostosis [Unknown]

NARRATIVE: CASE EVENT DATE: 20170508
